FAERS Safety Report 10256099 (Version 2)
Quarter: 2014Q3

REPORT INFORMATION
  Report Type: Spontaneous
  Country: FR (occurrence: FR)
  Receive Date: 20140624
  Receipt Date: 20140702
  Transmission Date: 20150326
  Serious: Yes (Death, Other)
  Sender: FDA-Public Use
  Company Number: FR-BAXTER-2014BAX032813

PATIENT
  Sex: Male

DRUGS (4)
  1. ENDOXAN 1000 MG, POUDRE POUR SOLUTION INJECTABLE [Suspect]
     Active Substance: CYCLOPHOSPHAMIDE
     Indication: ACQUIRED HAEMOPHILIA
     Route: 065
     Dates: start: 20140423, end: 20140515
  2. FEIBA [Suspect]
     Active Substance: ANTI-INHIBITOR COAGULANT COMPLEX
     Indication: ACQUIRED HAEMOPHILIA
     Route: 065
     Dates: start: 20140518, end: 20140521
  3. FEIBA [Suspect]
     Active Substance: ANTI-INHIBITOR COAGULANT COMPLEX
     Indication: AUTOIMMUNE DISORDER
     Route: 065
     Dates: start: 20140423, end: 20140515
  4. ENDOXAN 1000 MG, POUDRE POUR SOLUTION INJECTABLE [Suspect]
     Active Substance: CYCLOPHOSPHAMIDE
     Indication: OFF LABEL USE

REACTIONS (5)
  - Platelet count increased [Unknown]
  - Muscle haemorrhage [Unknown]
  - Disseminated intravascular coagulation [Recovered/Resolved]
  - Sepsis [Fatal]
  - Pulmonary oedema [Fatal]

NARRATIVE: CASE EVENT DATE: 20140426
